FAERS Safety Report 6748025-5 (Version None)
Quarter: 2010Q2

REPORT INFORMATION
  Report Type: 
  Country: None (occurrence: None)
  Receive Date: 20100530
  Receipt Date: 20100517
  Transmission Date: 20101027
  Serious: Yes (Hospitalization, Other)
  Sender: FDA-Public Use
  Company Number: FR-BRISTOL-MYERS SQUIBB COMPANY-15123912

PATIENT
  Age: 81 Year
  Sex: Female

DRUGS (5)
  1. GLUCOPHAGE [Suspect]
     Indication: DIABETES MELLITUS
     Dosage: GLUCOPHAGE 500MG
     Route: 048
     Dates: end: 20100315
  2. TEGRETOL [Suspect]
     Indication: BIPOLAR I DISORDER
     Dosage: 1 DF=200MG TABLET. STARTED 5-10 YEARS AGO.
     Route: 048
     Dates: end: 20100415
  3. SELOKEN [Concomitant]
  4. LEVOTHYROXINE SODIUM [Concomitant]
  5. DEROXAT [Concomitant]

REACTIONS (3)
  - LACTIC ACIDOSIS [None]
  - PANCREATITIS ACUTE [None]
  - RENAL FAILURE [None]
